FAERS Safety Report 18445975 (Version 2)
Quarter: 2020Q4

REPORT INFORMATION
  Report Type: Spontaneous
  Country: PR (occurrence: PR)
  Receive Date: 20201030
  Receipt Date: 20201117
  Transmission Date: 20210114
  Serious: Yes (Other)
  Sender: FDA-Public Use
  Company Number: PR-BAYER-2020-228641

PATIENT
  Age: 78 Year
  Sex: Female

DRUGS (1)
  1. NEXAVAR [Suspect]
     Active Substance: SORAFENIB
     Indication: THYROID CANCER
     Dosage: 200 MG, BID
     Dates: start: 20200922, end: 20201006

REACTIONS (4)
  - Muscle spasms [Not Recovered/Not Resolved]
  - Off label use [None]
  - Adverse event [None]
  - Vulvovaginal injury [None]

NARRATIVE: CASE EVENT DATE: 20201006
